FAERS Safety Report 4944927-0 (Version None)
Quarter: 2006Q1

REPORT INFORMATION
  Report Type: 
  Country: None (occurrence: None)
  Receive Date: 20060110
  Receipt Date: 20051107
  Transmission Date: 20060701
  Serious: Yes (Hospitalization)
  Sender: FDA-Public Use
  Company Number: 914#1#2005-00016

PATIENT

DRUGS (2)
  1. VERELAN PM [Suspect]
     Indication: HYPERTENSION
     Dosage: 200MG, ORAL
     Route: 048
  2. ACE-INHIBITOR [Suspect]
     Dosage: ORAL
     Route: 048

REACTIONS (1)
  - ATRIOVENTRICULAR BLOCK [None]
